FAERS Safety Report 17809107 (Version 1)
Quarter: 2020Q2

REPORT INFORMATION
  Report Type: Spontaneous
  Country: ES (occurrence: ES)
  Receive Date: 20200520
  Receipt Date: 20200520
  Transmission Date: 20200714
  Serious: Yes (Other)
  Sender: FDA-Public Use
  Company Number: ES-MYLANLABS-2020M1050102

PATIENT
  Age: 65 Year
  Sex: Female

DRUGS (3)
  1. INDIGO CARMINE [Concomitant]
     Active Substance: INDIGOTINDISULFONATE SODIUM
     Dosage: DOSAGE AND ROUTE: SUBMUCOSAL INJECTION WITH DILUTION OF GLYCEROL PLUS..
  2. EPINEPHRINE. [Suspect]
     Active Substance: EPINEPHRINE
     Indication: PROPHYLAXIS
     Dosage: DOSAGE AND ROUTE: SUBMUCOSAL INJECTION WITH DILUTION OF GLYCEROL PLUS INDIGO..
  3. GLYCEROL [Concomitant]
     Active Substance: GLYCERIN
     Dosage: DOSAGE AND ROUTE: SUBMUCOSAL INJECTION WITH DILUTION OF GLYCEROL PLUS..

REACTIONS (2)
  - Atrial fibrillation [Not Recovered/Not Resolved]
  - Off label use [Unknown]
